FAERS Safety Report 9099504 (Version 1)
Quarter: 2013Q1

REPORT INFORMATION
  Report Type: Spontaneous
  Country: BE (occurrence: BE)
  Receive Date: 20130214
  Receipt Date: 20130214
  Transmission Date: 20140127
  Serious: Yes (Other)
  Sender: FDA-Public Use
  Company Number: PHHY2012BE047889

PATIENT
  Age: 63 Year
  Sex: Male

DRUGS (1)
  1. SANDOSTATINE LAR [Suspect]
     Indication: NEUROENDOCRINE TUMOUR
     Dosage: 30 MG, 1 X 28 DAYS
     Route: 030
     Dates: start: 20111215, end: 201301

REACTIONS (3)
  - Hepatic neoplasm [Unknown]
  - Decreased appetite [Unknown]
  - Alopecia [Unknown]
